FAERS Safety Report 23611917 (Version 7)
Quarter: 2025Q1

REPORT INFORMATION
  Report Type: Spontaneous
  Country: US (occurrence: US)
  Receive Date: 20240308
  Receipt Date: 20250205
  Transmission Date: 20250408
  Serious: Yes (Hospitalization, Other)
  Sender: PFIZER
  Company Number: US-PFIZER INC-202400058681

PATIENT
  Age: 74 Year
  Sex: Female

DRUGS (13)
  1. XELJANZ [Suspect]
     Active Substance: TOFACITINIB CITRATE
     Indication: Rheumatoid arthritis
     Dosage: TAKE 1 TABLET BY MOUTH TWICE A DAY
     Route: 048
  2. XELJANZ [Suspect]
     Active Substance: TOFACITINIB CITRATE
     Dosage: 5 MG, 2X/DAY
     Route: 048
     Dates: end: 20241011
  3. XELJANZ [Suspect]
     Active Substance: TOFACITINIB CITRATE
     Dates: start: 20241210
  4. XELJANZ [Suspect]
     Active Substance: TOFACITINIB CITRATE
     Dosage: TAKE 1 TABLET BY MOUTH TWICE A DAY
     Route: 048
     Dates: end: 20241226
  5. FOLIC ACID [Concomitant]
     Active Substance: FOLIC ACID
  6. CALCIUM + VITAMIN D3 + K2 [Concomitant]
  7. SYNTHROID [Concomitant]
     Active Substance: LEVOTHYROXINE SODIUM
  8. ANORO ELLIPTA [Concomitant]
     Active Substance: UMECLIDINIUM BROMIDE\VILANTEROL TRIFENATATE
  9. ALBUTEROL [Concomitant]
     Active Substance: ALBUTEROL
  10. URSODIOL [Concomitant]
     Active Substance: URSODIOL
  11. METOPROLOL TARTRATE [Concomitant]
     Active Substance: METOPROLOL TARTRATE
  12. FOLATE SODIUM [Concomitant]
     Active Substance: FOLATE SODIUM
  13. INFLUENZA VIRUS VACCINE [Concomitant]
     Active Substance: INFLUENZA VIRUS VACCINE
     Dates: start: 20241011, end: 20241011

REACTIONS (13)
  - Respiratory syncytial virus infection [Unknown]
  - Hypertension [Unknown]
  - Ankle fracture [Recovered/Resolved]
  - Product dose omission issue [Unknown]
  - White blood cell count decreased [Unknown]
  - Dry eye [Unknown]
  - Fatigue [Unknown]
  - Arthralgia [Unknown]
  - Sinusitis [Unknown]
  - Bronchitis [Unknown]
  - Malaise [Unknown]
  - Dyspnoea [Unknown]
  - Pharyngitis streptococcal [Unknown]

NARRATIVE: CASE EVENT DATE: 20230201
